FAERS Safety Report 9929226 (Version 2)
Quarter: 2014Q2

REPORT INFORMATION
  Report Type: Spontaneous
  Country: IT (occurrence: IT)
  Receive Date: 20140227
  Receipt Date: 20140603
  Transmission Date: 20141212
  Serious: Yes (Other)
  Sender: FDA-Public Use
  Company Number: IT-ACTAVIS-2014-03115

PATIENT
  Age: 59 Year
  Sex: Male

DRUGS (4)
  1. OXALIPLATIN (UNKNOWN) [Suspect]
     Indication: COLON NEOPLASM
     Dosage: 130 MG, CYCLICAL
     Route: 042
     Dates: start: 20111201, end: 20120127
  2. FLUOROURACIL (UNKNOWN) [Suspect]
     Indication: COLON NEOPLASM
     Dosage: 2600 MG, CYCLICAL
     Route: 042
     Dates: start: 20111201, end: 20120127
  3. AVASTIN                            /00848101/ [Suspect]
     Indication: COLON NEOPLASM
     Dosage: 300 MG, CYCLICAL
     Route: 042
     Dates: start: 20111201, end: 20120127
  4. VALSARTAN/HYDROCHLOORTHIAZIDE [Concomitant]
     Indication: HYPERTENSION
     Dosage: UNK
     Route: 065

REACTIONS (1)
  - Deep vein thrombosis [Recovering/Resolving]
